FAERS Safety Report 12641977 (Version 1)
Quarter: 2016Q3

REPORT INFORMATION
  Report Type: Spontaneous
  Country: CA (occurrence: CA)
  Receive Date: 20160810
  Receipt Date: 20160810
  Transmission Date: 20161109
  Serious: Yes (Hospitalization)
  Sender: FDA-Public Use
  Company Number: CA-SA-2016SA143231

PATIENT
  Age: 51 Year
  Sex: Female
  Weight: 45 kg

DRUGS (11)
  1. BACLOFEN. [Concomitant]
     Active Substance: BACLOFEN
  2. PMS-ISONIAZID [Suspect]
     Active Substance: ISONIAZID
     Indication: TUBERCULOSIS
     Dosage: 1 EVERY 3?WEEK(S)
     Route: 048
  3. ROFACT (RIFAMPICIN) [Suspect]
     Active Substance: RIFAMPIN
     Indication: PULMONARY TUBERCULOSIS
     Dosage: FREQ: 3 EVERY ONE WEEK
     Route: 048
  4. ACETAMINOPHEN. [Concomitant]
     Active Substance: ACETAMINOPHEN
  5. ROFACT (RIFAMPICIN) [Suspect]
     Active Substance: RIFAMPIN
     Indication: TUBERCULOSIS
     Dosage: FREQ: 3 EVERY ONE WEEK
     Route: 048
  6. RIFADIN [Suspect]
     Active Substance: RIFAMPIN
     Route: 065
  7. RABEPRAZOLE [Concomitant]
     Active Substance: RABEPRAZOLE
  8. PMS-ISONIAZID [Suspect]
     Active Substance: ISONIAZID
     Indication: PULMONARY TUBERCULOSIS
     Dosage: 1 EVERY 3?WEEK(S)
     Route: 048
  9. FLUCONAZOLE. [Concomitant]
     Active Substance: FLUCONAZOLE
  10. PYRIDOXINE [Concomitant]
     Active Substance: PYRIDOXINE
  11. DIMENHYDRINATE. [Concomitant]
     Active Substance: DIMENHYDRINATE

REACTIONS (6)
  - Hypertension [Recovered/Resolved]
  - Pyrexia [Recovered/Resolved]
  - Nausea [Recovered/Resolved]
  - Toxic epidermal necrolysis [Recovered/Resolved]
  - Diarrhoea [Recovered/Resolved]
  - Vomiting [Recovered/Resolved]
